FAERS Safety Report 10064636 (Version 1)
Quarter: 2014Q1

REPORT INFORMATION
  Report Type: Spontaneous
  Country: US (occurrence: None)
  Receive Date: 20140328
  Receipt Date: 20140328
  Transmission Date: 20141002
  Serious: No
  Sender: FDA-Public Use
  Company Number: 1000053405

PATIENT
  Age: 63 Year
  Sex: Female

DRUGS (3)
  1. LINZESS [Suspect]
     Indication: CONSTIPATION
     Dosage: 1 IN 1 D
     Route: 048
     Dates: start: 20140125
  2. LAXATIVE  (NOS) (LAXATIVE (NOS)) [Concomitant]
  3. LEVOTHYROXINE (LEVOTHYROXINE SODIUM) [Concomitant]

REACTIONS (3)
  - Diarrhoea [None]
  - Mucous stools [None]
  - Gastrointestinal sounds abnormal [None]
